FAERS Safety Report 8337272 (Version 2)
Quarter: 2013Q3

REPORT INFORMATION
  Report Type: Report from Study
  Country: MW (occurrence: MW)
  Receive Date: 20120113
  Receipt Date: 20130830
  Transmission Date: 20140515
  Serious: Yes (Hospitalization, Other)
  Sender: FDA-Public Use
  Company Number: MW-ABBOTT-12P-100-0888909-00

PATIENT
  Sex: 0

DRUGS (2)
  1. ALUVIA TABLETS [Suspect]
     Indication: HIV INFECTION
     Dosage: RANDOMIZED TO ARM C (PI MONOTHERAPY)
     Route: 048
     Dates: start: 20110401
  2. COTRIMOXAZOLE [Concomitant]
     Indication: PRODUCT USED FOR UNKNOWN INDICATION
     Dates: start: 20050905

REACTIONS (2)
  - Malaria [Recovered/Resolved]
  - Pneumonia [Recovered/Resolved]
